FAERS Safety Report 13540526 (Version 1)
Quarter: 2017Q2

REPORT INFORMATION
  Report Type: Spontaneous
  Country: FR (occurrence: FR)
  Receive Date: 20170512
  Receipt Date: 20170512
  Transmission Date: 20170830
  Serious: Yes (Hospitalization)
  Sender: FDA-Public Use
  Company Number: FR-PFIZER INC-2017200124

PATIENT
  Age: 26 Year
  Sex: Female

DRUGS (80)
  1. CYTARABINE SANDOZ [Suspect]
     Active Substance: CYTARABINE
     Dosage: 3000 MG/M2, CYCLIC (DAY 2 AND DAY 5)
     Route: 041
     Dates: start: 20170411, end: 20170411
  2. ARACYTINE [Concomitant]
     Active Substance: CYTARABINE
     Dosage: 40 MG, DAILY
     Route: 037
     Dates: start: 20170115, end: 20170115
  3. ARACYTINE [Concomitant]
     Active Substance: CYTARABINE
     Dosage: 40 MG, DAILY
     Route: 037
     Dates: start: 20170125, end: 20170125
  4. METHOTREXATE. [Concomitant]
     Active Substance: METHOTREXATE
     Dosage: 3 G/M2
     Dates: start: 20170210, end: 20170210
  5. DOXORUBICIN HYDROCHLORIDE. [Concomitant]
     Active Substance: DOXORUBICIN HYDROCHLORIDE
     Indication: BURKITT^S LYMPHOMA STAGE IV
     Dosage: 60 MG/M2, CYCLIC
     Dates: start: 20170121, end: 20170121
  6. DOXORUBICIN HYDROCHLORIDE. [Concomitant]
     Active Substance: DOXORUBICIN HYDROCHLORIDE
     Dosage: 60 MG/M2, CYCLIC
     Dates: start: 20170211, end: 20170211
  7. MABTHERA [Concomitant]
     Active Substance: RITUXIMAB
     Dosage: 375 MG/M2, CYCLIC
     Dates: start: 20170125, end: 20170125
  8. MABTHERA [Concomitant]
     Active Substance: RITUXIMAB
     Dosage: 375 MG/M2, CYCLIC
     Dates: start: 20170215, end: 20170215
  9. FORTUM [Concomitant]
     Active Substance: CEFTAZIDIME
     Dosage: UNK
     Dates: start: 20170224, end: 20170309
  10. ZARZIO [Concomitant]
     Active Substance: FILGRASTIM
     Indication: FEBRILE BONE MARROW APLASIA
     Dosage: UNK
     Dates: start: 20170316
  11. SOLUPRED [Concomitant]
     Active Substance: PREDNISOLONE
     Dosage: 60 MG/M2, CYCLIC
     Dates: start: 20170120, end: 20170120
  12. CACIT [Concomitant]
     Active Substance: CALCIUM\VITAMIN D
  13. HYDROCORTISONE HEMISUCCINATE [Concomitant]
     Active Substance: HYDROCORTISONE HEMISUCCINATE
     Dosage: 25 MG, CYCLIC
     Dates: start: 20170215, end: 20170215
  14. SOLU-MEDROL [Suspect]
     Active Substance: METHYLPREDNISOLONE SODIUM SUCCINATE
     Dosage: 0.50 MG/KG, CYCLIC
     Route: 041
     Dates: start: 20170408, end: 20170408
  15. VINCRISTINE SULFATE. [Suspect]
     Active Substance: VINCRISTINE SULFATE
     Dosage: 1.4 MG/M2, CYCLIC
     Route: 041
     Dates: start: 20170215, end: 20170215
  16. METHOTREXATE. [Concomitant]
     Active Substance: METHOTREXATE
     Dosage: UNK
     Dates: start: 20170111, end: 20170111
  17. TAZOCILLINE [Concomitant]
     Active Substance: PIPERACILLIN SODIUM\TAZOBACTAM SODIUM
     Indication: BACTERIAL PYELONEPHRITIS
     Dosage: UNK
     Dates: start: 20170127, end: 20170130
  18. PROGRAF [Concomitant]
     Active Substance: TACROLIMUS\TACROLIMUS ANHYDROUS
     Indication: PROPHYLAXIS AGAINST TRANSPLANT REJECTION
     Dosage: 1 MG, 2X/DAY
     Route: 048
     Dates: start: 20160413, end: 20170115
  19. CYCLOPHOSPHAMIDE. [Concomitant]
     Active Substance: CYCLOPHOSPHAMIDE
     Dosage: 500 MG/M2, CYCLIC
     Dates: start: 20170123, end: 20170123
  20. CYCLOPHOSPHAMIDE. [Concomitant]
     Active Substance: CYCLOPHOSPHAMIDE
     Dosage: 100 MG/M2, CYCLIC
     Dates: start: 20170211, end: 20170211
  21. DAPTOMYCIN. [Concomitant]
     Active Substance: DAPTOMYCIN
     Indication: BACTERIAL PYELONEPHRITIS
     Dosage: UNK
     Dates: start: 20170130, end: 20170213
  22. AMIKACIN [Concomitant]
     Active Substance: AMIKACIN
     Indication: BACTERIAL PYELONEPHRITIS
     Dosage: UNK
     Dates: start: 20170213, end: 20170224
  23. ZAVICEFTA [Concomitant]
     Dosage: UNK
     Dates: start: 20170224, end: 20170309
  24. VINCRISTINE SULFATE. [Suspect]
     Active Substance: VINCRISTINE SULFATE
     Dosage: 1.4 MG/M2, CYCLIC
     Route: 041
     Dates: start: 20170120, end: 20170120
  25. ARACYTINE [Concomitant]
     Active Substance: CYTARABINE
     Dosage: 40 MG, DAILY
     Route: 037
     Dates: start: 20170215, end: 20170215
  26. METHOTREXATE. [Concomitant]
     Active Substance: METHOTREXATE
     Dosage: 15 MG, CYCLIC
     Route: 037
     Dates: start: 20170215, end: 20170215
  27. CYCLOPHOSPHAMIDE. [Concomitant]
     Active Substance: CYCLOPHOSPHAMIDE
     Dosage: 100 MG/M2, CYCLIC
     Dates: start: 20170213, end: 20170213
  28. FORTUM [Concomitant]
     Active Substance: CEFTAZIDIME
     Indication: BACTERIAL PYELONEPHRITIS
     Dosage: UNK
     Dates: start: 20170130, end: 20170213
  29. DIFFU K [Concomitant]
     Active Substance: POTASSIUM CHLORIDE
  30. HYDROCORTISONE HEMISUCCINATE [Concomitant]
     Active Substance: HYDROCORTISONE HEMISUCCINATE
     Dosage: 25 MG, CYCLIC
     Dates: start: 20170211, end: 20170211
  31. SOLU-MEDROL [Suspect]
     Active Substance: METHYLPREDNISOLONE SODIUM SUCCINATE
     Dosage: 40 MG, UNK
     Dates: start: 20170124, end: 20170124
  32. SOLU-MEDROL [Suspect]
     Active Substance: METHYLPREDNISOLONE SODIUM SUCCINATE
     Dosage: 60 MG/M2, CYCLIC
     Dates: start: 20170210, end: 20170210
  33. SOLU-MEDROL [Suspect]
     Active Substance: METHYLPREDNISOLONE SODIUM SUCCINATE
     Dosage: 60 MG/M2, CYCLIC
     Dates: start: 20170214, end: 20170214
  34. FLAGYL [Suspect]
     Active Substance: METRONIDAZOLE\METRONIDAZOLE HYDROCHLORIDE
     Indication: ESCHERICHIA PYELONEPHRITIS
     Dosage: UNK
     Route: 041
     Dates: start: 20170213, end: 20170224
  35. CYTARABINE SANDOZ [Suspect]
     Active Substance: CYTARABINE
     Dosage: 50 MG/M2, CYCLIC
     Route: 041
     Dates: start: 20170310, end: 20170310
  36. CYTARABINE SANDOZ [Suspect]
     Active Substance: CYTARABINE
     Dosage: 3000 MG/M2, CYCLIC
     Route: 041
     Dates: start: 20170310, end: 20170310
  37. CYTARABINE SANDOZ [Suspect]
     Active Substance: CYTARABINE
     Dosage: 50 MG/M2, CYCLIC
     Route: 041
     Dates: start: 20170407, end: 20170407
  38. CYTARABINE SANDOZ [Suspect]
     Active Substance: CYTARABINE
     Dosage: 50 MG/M2, CYCLIC
     Route: 041
     Dates: start: 20170411, end: 20170411
  39. ARACYTINE [Concomitant]
     Active Substance: CYTARABINE
     Indication: BURKITT^S LYMPHOMA STAGE IV
     Dosage: 40 MG, DAILY
     Route: 037
     Dates: start: 20170111, end: 20170111
  40. IMUREL [Concomitant]
     Active Substance: AZATHIOPRINE SODIUM
     Indication: PROPHYLAXIS AGAINST TRANSPLANT REJECTION
     Dosage: 50 MG, 1X/DAY
     Route: 048
     Dates: start: 20160704, end: 20170106
  41. SOLU-MEDROL [Suspect]
     Active Substance: METHYLPREDNISOLONE SODIUM SUCCINATE
     Dosage: 40 MG/M2, CYCLIC
     Route: 017
     Dates: start: 20170209, end: 20170209
  42. VINCRISTINE SULFATE. [Suspect]
     Active Substance: VINCRISTINE SULFATE
     Indication: BURKITT^S LYMPHOMA STAGE IV
     Dosage: UNK
     Route: 041
     Dates: start: 20170111, end: 20170111
  43. VINCRISTINE SULFATE. [Suspect]
     Active Substance: VINCRISTINE SULFATE
     Dosage: 1.4 MG/M2, CYCLIC
     Route: 041
     Dates: start: 20170210, end: 20170210
  44. ETOPOSIDE MYLAN [Suspect]
     Active Substance: ETOPOSIDE
     Indication: BURKITT^S LYMPHOMA STAGE IV
     Dosage: 200 MG/M2, CYCLIC
     Route: 041
     Dates: start: 20170307, end: 20170307
  45. ETOPOSIDE MYLAN [Suspect]
     Active Substance: ETOPOSIDE
     Dosage: 200 MG/M2, CYCLIC
     Route: 041
     Dates: start: 20170408, end: 20170408
  46. DEPO-MEDROL [Concomitant]
     Active Substance: METHYLPREDNISOLONE ACETATE
     Dosage: UNK
     Dates: start: 20170115, end: 20170115
  47. DEPO-MEDROL [Concomitant]
     Active Substance: METHYLPREDNISOLONE ACETATE
     Dosage: 40 MG, CYCLIC
     Dates: start: 20170121, end: 20170121
  48. METHOTREXATE. [Concomitant]
     Active Substance: METHOTREXATE
     Dosage: 3 G/M2
     Dates: start: 20170120, end: 20170120
  49. METHOTREXATE. [Concomitant]
     Active Substance: METHOTREXATE
     Dosage: 15 MG, CYCLIC
     Route: 037
     Dates: start: 20170125, end: 20170125
  50. METHOTREXATE. [Concomitant]
     Active Substance: METHOTREXATE
     Dosage: 15 MG, CYCLIC
     Route: 037
     Dates: start: 20170211, end: 20170211
  51. INEXIUM [Concomitant]
     Active Substance: ESOMEPRAZOLE
     Dosage: UNK
  52. SPECIAFOLDINE [Concomitant]
     Active Substance: FOLIC ACID
  53. CYCLOPHOSPHAMIDE. [Concomitant]
     Active Substance: CYCLOPHOSPHAMIDE
     Dosage: 500 MG/M2, CYCLIC
     Dates: start: 20170121, end: 20170121
  54. SOLUPRED [Concomitant]
     Active Substance: PREDNISOLONE
     Indication: BURKITT^S LYMPHOMA STAGE IV
     Dosage: 60 MG/M2, CYCLIC
     Dates: start: 20170111, end: 20170111
  55. CYTARABINE SANDOZ [Suspect]
     Active Substance: CYTARABINE
     Dosage: 3000 MG/M2, CYCLIC (DAY 2 AND DAY 5)
     Route: 041
     Dates: start: 20170408, end: 20170408
  56. METHOTREXATE. [Concomitant]
     Active Substance: METHOTREXATE
     Dosage: 15 MG, CYCLIC
     Route: 037
     Dates: start: 20170121, end: 20170121
  57. CORTANCYL [Concomitant]
     Active Substance: PREDNISONE
     Indication: PROPHYLAXIS AGAINST TRANSPLANT REJECTION
     Dosage: 5 MG, 1X/DAY
     Route: 048
     Dates: start: 20170413
  58. CYCLOPHOSPHAMIDE. [Concomitant]
     Active Substance: CYCLOPHOSPHAMIDE
     Indication: BURKITT^S LYMPHOMA STAGE IV
     Dosage: UNK
     Dates: start: 20170111, end: 20170111
  59. MABTHERA [Concomitant]
     Active Substance: RITUXIMAB
     Dosage: 375 MG/M2, CYCLIC
     Dates: start: 20170209, end: 20170209
  60. SOLUPRED [Concomitant]
     Active Substance: PREDNISOLONE
     Dosage: 60 MG/M2, CYCLIC
     Dates: start: 20170117, end: 20170117
  61. ETOPOSIDE MYLAN [Suspect]
     Active Substance: ETOPOSIDE
     Dosage: 200 MG/M2, CYCLIC
     Route: 041
     Dates: start: 20170411, end: 20170411
  62. CYTARABINE SANDOZ [Suspect]
     Active Substance: CYTARABINE
     Indication: BURKITT^S LYMPHOMA STAGE IV
     Dosage: 50 MG/M2, CYCLIC
     Route: 041
     Dates: start: 20170306, end: 20170306
  63. CYTARABINE SANDOZ [Suspect]
     Active Substance: CYTARABINE
     Dosage: 3000 MG/M2, CYCLIC
     Route: 041
     Dates: start: 20170307, end: 20170307
  64. ARACYTINE [Concomitant]
     Active Substance: CYTARABINE
     Dosage: 40 MG, DAILY
     Route: 037
     Dates: start: 20170121, end: 20170121
  65. LUTENYL [Concomitant]
     Active Substance: NOMEGESTROL ACETATE
  66. SOLU-MEDROL [Suspect]
     Active Substance: METHYLPREDNISOLONE SODIUM SUCCINATE
     Dosage: 40 MG/M2, CYCLIC
     Dates: start: 20170214, end: 20170214
  67. SOLU-MEDROL [Suspect]
     Active Substance: METHYLPREDNISOLONE SODIUM SUCCINATE
     Dosage: 0.50 MG/KG, CYCLIC
     Route: 041
     Dates: start: 20170307, end: 20170307
  68. SOLU-MEDROL [Suspect]
     Active Substance: METHYLPREDNISOLONE SODIUM SUCCINATE
     Dosage: 0.50 MG/KG, CYCLIC
     Route: 041
     Dates: start: 20170411, end: 20170411
  69. ETOPOSIDE MYLAN [Suspect]
     Active Substance: ETOPOSIDE
     Dosage: 200 MG/M2, CYCLIC
     Route: 041
     Dates: start: 20170310, end: 20170310
  70. ARACYTINE [Concomitant]
     Active Substance: CYTARABINE
     Dosage: 40 MG, DAILY
     Route: 037
     Dates: start: 20170211, end: 20170211
  71. DEPO-MEDROL [Concomitant]
     Active Substance: METHYLPREDNISOLONE ACETATE
     Indication: BURKITT^S LYMPHOMA STAGE IV
     Dosage: UNK
     Dates: start: 20170111, end: 20170111
  72. DEPO-MEDROL [Concomitant]
     Active Substance: METHYLPREDNISOLONE ACETATE
     Dosage: 40 MG, CYCLIC
     Dates: start: 20170125, end: 20170125
  73. METHOTREXATE. [Concomitant]
     Active Substance: METHOTREXATE
     Dosage: UNK
     Dates: start: 20170115, end: 20170115
  74. MABTHERA [Concomitant]
     Active Substance: RITUXIMAB
     Indication: BURKITT^S LYMPHOMA STAGE IV
     Dosage: 375 MG/M2, CYCLIC
     Dates: start: 20170119, end: 20170119
  75. MERONEM [Concomitant]
     Active Substance: MEROPENEM
     Indication: BACTERIAL PYELONEPHRITIS
     Dosage: UNK
     Dates: start: 20170213, end: 20170224
  76. CEFTAZIDIME. [Concomitant]
     Active Substance: CEFTAZIDIME
     Indication: BACTERIAL PYELONEPHRITIS
     Dosage: UNK
     Dates: start: 20170224, end: 20170309
  77. SOLUPRED [Concomitant]
     Active Substance: PREDNISOLONE
     Dosage: 60 MG/M2, CYCLIC
     Dates: start: 20170124, end: 20170124
  78. SOLU-MEDROL [Suspect]
     Active Substance: METHYLPREDNISOLONE SODIUM SUCCINATE
     Indication: BURKITT^S LYMPHOMA STAGE IV
     Dosage: 40 MG, UNK
     Dates: start: 20170120, end: 20170120
  79. SOLU-MEDROL [Suspect]
     Active Substance: METHYLPREDNISOLONE SODIUM SUCCINATE
     Dosage: 0.50 MG/KG, CYCLIC
     Route: 041
     Dates: start: 20170310, end: 20170310
  80. FLAGYL [Suspect]
     Active Substance: METRONIDAZOLE\METRONIDAZOLE HYDROCHLORIDE
     Dosage: UNK
     Route: 041
     Dates: start: 20170316, end: 20170322

REACTIONS (2)
  - Paraesthesia [Not Recovered/Not Resolved]
  - Axonal neuropathy [Not Recovered/Not Resolved]

NARRATIVE: CASE EVENT DATE: 201703
